FAERS Safety Report 8418204-X (Version None)
Quarter: 2012Q2

REPORT INFORMATION
  Report Type: 
  Country: None (occurrence: None)
  Receive Date: 20120607
  Receipt Date: 20120525
  Transmission Date: 20120825
  Serious: Yes (Death, Hospitalization)
  Sender: FDA-Public Use
  Company Number: DE-RANBAXY-2009RR-27020

PATIENT
  Age: 41 Year
  Sex: Female
  Weight: 77 kg

DRUGS (5)
  1. CLARITHROMYCIN [Suspect]
     Indication: SINUSITIS
     Dosage: 250 MG, BID
     Route: 048
     Dates: start: 20090603, end: 20090612
  2. CEFUROXIME [Concomitant]
     Indication: SINUSITIS
     Dosage: 500 MG, BID
     Route: 048
     Dates: start: 20090501, end: 20090501
  3. SINGULAIR [Concomitant]
     Indication: ASTHMA
     Dosage: 10 MG, QD
     Route: 048
  4. CLINDAMYCIN [Suspect]
     Indication: SINUSITIS
     Dosage: 600 MG, TID
     Route: 048
     Dates: start: 20090626, end: 20090706
  5. LEVOTHYROXINE SODIUM [Concomitant]
     Indication: AUTOIMMUNE THYROIDITIS
     Dosage: 50 UG, QD
     Route: 048

REACTIONS (1)
  - ENTERITIS INFECTIOUS [None]
